FAERS Safety Report 23321476 (Version 1)
Quarter: 2023Q4

REPORT INFORMATION
  Report Type: Spontaneous
  Country: CZ (occurrence: CZ)
  Receive Date: 20231220
  Receipt Date: 20231220
  Transmission Date: 20240109
  Serious: Yes (Life-Threatening, Hospitalization, Other)
  Sender: FDA-Public Use
  Company Number: None

PATIENT
  Age: 73 Year
  Sex: Female
  Weight: 57 kg

DRUGS (15)
  1. CARBOPLATIN [Suspect]
     Active Substance: CARBOPLATIN
     Indication: Ovarian cancer
     Dosage: 4 CYCLES OF NEOADJUVANT CHEMOTHERAPY CONCOMITANTLY WITH PACLITAXEL FROM 24TH MARCH - 29TH MAY 2023 E
     Route: 042
     Dates: start: 20230324, end: 20230911
  2. ZEJULA [Suspect]
     Active Substance: NIRAPARIB
     Indication: Ovarian cancer
     Dosage: 2-0-0?FORM: HARD CAPSULE?ROA: ORAL
     Dates: start: 20231102, end: 20231121
  3. BISOPROLOL FUMARATE [Concomitant]
     Active Substance: BISOPROLOL FUMARATE
     Indication: Product used for unknown indication
     Dosage: 1-0-0
  4. DAPAGLIFLOZIN [Concomitant]
     Active Substance: DAPAGLIFLOZIN
     Indication: Product used for unknown indication
  5. VEROSPIRON 25mg [Concomitant]
     Indication: Product used for unknown indication
  6. DICLOFENAC SODIUM [Concomitant]
     Active Substance: DICLOFENAC\DICLOFENAC SODIUM
     Indication: Product used for unknown indication
  7. MICTONORM UNO 45mg [Concomitant]
     Indication: Product used for unknown indication
     Dosage: 0-0-1
  8. CARBOHYDRATES\FATTY ACIDS\MINERALS\PROTEIN\VITAMINS [Concomitant]
     Active Substance: CARBOHYDRATES\FATTY ACIDS\MINERALS\PROTEIN\VITAMINS
     Indication: Product used for unknown indication
     Dosage: VANILLA SOL.200ML TWICE A DAY
  9. CARBOHYDRATES\FATTY ACIDS\MINERALS\PROTEIN\VITAMINS [Concomitant]
     Active Substance: CARBOHYDRATES\FATTY ACIDS\MINERALS\PROTEIN\VITAMINS
     Dosage: SOL. 125ML 1-0-1 IN BETWEEN MEALS
  10. TULIP 10mg [Concomitant]
     Dosage: 0-0-1
  11. KALNORMIN 1g [Concomitant]
  12. LETROX 75ug [Concomitant]
  13. ELIQUIS [Concomitant]
     Active Substance: APIXABAN
  14. FURON 40mg [Concomitant]
     Indication: Product used for unknown indication
  15. ASKETON 50mg [Concomitant]
     Indication: Product used for unknown indication
     Dosage: 1-1-1 WHEN NEEDED

REACTIONS (3)
  - Cardiac failure [Not Recovered/Not Resolved]
  - Atrial fibrillation [Not Recovered/Not Resolved]
  - Haematotoxicity [Not Recovered/Not Resolved]

NARRATIVE: CASE EVENT DATE: 20231127
